FAERS Safety Report 6930520-7 (Version None)
Quarter: 2010Q3

REPORT INFORMATION
  Report Type: 
  Country: None (occurrence: None)
  Receive Date: 20100818
  Receipt Date: 20100806
  Transmission Date: 20110219
  Serious: Yes (Death, Hospitalization)
  Sender: FDA-Public Use
  Company Number: A0862624A

PATIENT
  Age: 77 Year
  Sex: Female
  Weight: 86.4 kg

DRUGS (7)
  1. AVANDIA [Suspect]
     Route: 048
     Dates: end: 20020101
  2. ADVAIR DISKUS 100/50 [Concomitant]
  3. SPIRONOLACTONE [Concomitant]
  4. DIGITEK [Concomitant]
  5. ZESTRIL [Concomitant]
  6. LEVOXYL [Concomitant]
  7. GLUCOVANCE [Concomitant]

REACTIONS (1)
  - CARDIAC FAILURE CONGESTIVE [None]
